FAERS Safety Report 11893647 (Version 3)
Quarter: 2016Q1

REPORT INFORMATION
  Report Type: Report from Study
  Country: AU (occurrence: AU)
  Receive Date: 20160106
  Receipt Date: 20160119
  Transmission Date: 20160526
  Serious: Yes (Death, Hospitalization, Other)
  Sender: FDA-Public Use
  Company Number: AU-GILEAD-2016-0191086

PATIENT
  Age: 73 Year
  Sex: Male
  Weight: 60 kg

DRUGS (4)
  1. OFATUMUMAB [Suspect]
     Active Substance: OFATUMUMAB
     Indication: CHRONIC LYMPHOCYTIC LEUKAEMIA
     Dosage: 1000 MG, Q4WK
     Route: 042
     Dates: start: 20131015, end: 20140325
  2. NEXIUM [Concomitant]
     Active Substance: ESOMEPRAZOLE MAGNESIUM
  3. ACYCLOVIR                          /00587301/ [Concomitant]
     Active Substance: ACYCLOVIR
  4. IDELALISIB [Suspect]
     Active Substance: IDELALISIB
     Indication: CHRONIC LYMPHOCYTIC LEUKAEMIA
     Dosage: 100 MG, QD
     Route: 048
     Dates: start: 20151015, end: 20151209

REACTIONS (7)
  - Splenomegaly [None]
  - Cardiac failure [None]
  - Bile duct obstruction [Fatal]
  - Biliary sepsis [Fatal]
  - Cholelithiasis [None]
  - Portal vein occlusion [None]
  - Ascites [None]

NARRATIVE: CASE EVENT DATE: 20151231
